FAERS Safety Report 14675079 (Version 1)
Quarter: 2018Q1

REPORT INFORMATION
  Report Type: Spontaneous
  Country: ID (occurrence: ID)
  Receive Date: 20180323
  Receipt Date: 20180323
  Transmission Date: 20180509
  Serious: Yes (Other)
  Sender: FDA-Public Use
  Company Number: ID-ASTELLAS-2018US014395

PATIENT
  Sex: Male

DRUGS (1)
  1. ERLOTINIB [Suspect]
     Active Substance: ERLOTINIB
     Indication: LUNG NEOPLASM MALIGNANT
     Dosage: UNK UNK, UNKNOWN FREQ.
     Route: 065

REACTIONS (4)
  - Drug ineffective [Unknown]
  - Hepatomegaly [Recovering/Resolving]
  - Gastrointestinal disorder [Recovering/Resolving]
  - Trichomegaly [Recovered/Resolved]

NARRATIVE: CASE EVENT DATE: 2017
